FAERS Safety Report 19215578 (Version 1)
Quarter: 2021Q2

REPORT INFORMATION
  Report Type: Report from Study
  Country: None (occurrence: CA)
  Receive Date: 20210505
  Receipt Date: 20210505
  Transmission Date: 20210717
  Serious: Yes (Hospitalization)
  Sender: FDA-Public Use
  Company Number: CA-ABBVIE-21K-028-3885693-00

PATIENT
  Age: 16 Year
  Sex: Male

DRUGS (1)
  1. HUMIRA [Suspect]
     Active Substance: ADALIMUMAB
     Indication: HIDRADENITIS
     Route: 058
     Dates: start: 20210225, end: 202104

REACTIONS (4)
  - Loss of consciousness [Recovered/Resolved]
  - Haematemesis [Not Recovered/Not Resolved]
  - Adverse food reaction [Unknown]
  - Vomiting [Unknown]

NARRATIVE: CASE EVENT DATE: 202104
